FAERS Safety Report 4888622-5 (Version None)
Quarter: 2005Q4

REPORT INFORMATION
  Report Type: 
  Country: None (occurrence: None)
  Receive Date: 20051216
  Receipt Date: 20050823
  Transmission Date: 20060501
  Serious: No
  Sender: FDA-Public Use
  Company Number: USA0508106192

PATIENT
  Age: 65 Year
  Sex: Male

DRUGS (5)
  1. CIALIS [Suspect]
     Indication: ERECTILE DYSFUNCTION
     Dosage: 20 MG
     Dates: start: 20050821
  2. VITAMINS [Concomitant]
  3. CARDIAZEM  /00489701/(DILTIAZEM) [Concomitant]
  4. ZITHROMAX [Concomitant]
  5. Z-PACK (AZITHROMYCIN) [Concomitant]

REACTIONS (2)
  - BACK PAIN [None]
  - PAIN IN EXTREMITY [None]
